FAERS Safety Report 4492683-5 (Version None)
Quarter: 2004Q4

REPORT INFORMATION
  Report Type: 
  Country: None (occurrence: None)
  Receive Date: 20041029
  Receipt Date: 20041014
  Transmission Date: 20050328
  Serious: Yes (Hospitalization, Disabling, Other)
  Sender: FDA-Public Use
  Company Number: 2004239298US

PATIENT
  Age: 47 Year
  Sex: Female

DRUGS (2)
  1. PROVERA [Suspect]
     Dates: end: 19890101
  2. PREMARIN [Suspect]
     Dates: start: 19800101, end: 19890101

REACTIONS (8)
  - ARTHRALGIA [None]
  - CEREBROVASCULAR ACCIDENT [None]
  - HAEMOGLOBIN INCREASED [None]
  - MEDICATION ERROR [None]
  - PAIN IN EXTREMITY [None]
  - POST PROCEDURAL COMPLICATION [None]
  - PULMONARY EMBOLISM [None]
  - TRANSIENT ISCHAEMIC ATTACK [None]
